FAERS Safety Report 15822848 (Version 2)
Quarter: 2019Q1

REPORT INFORMATION
  Report Type: Spontaneous
  Country: PL (occurrence: PL)
  Receive Date: 20190114
  Receipt Date: 20190125
  Transmission Date: 20190417
  Serious: Yes (Hospitalization, Other)
  Sender: FDA-Public Use
  Company Number: PL-PFIZER INC-2019013079

PATIENT
  Age: 61 Year
  Sex: Male

DRUGS (18)
  1. PARACETAMOL [Suspect]
     Active Substance: ACETAMINOPHEN
     Indication: PAIN
     Dosage: UNK
     Route: 065
  2. PREDNISOLONE. [Suspect]
     Active Substance: PREDNISOLONE
     Indication: RENAL TRANSPLANT
     Dosage: 20 MG, UNK
     Route: 065
     Dates: start: 201710, end: 201710
  3. PREDNISOLONE. [Suspect]
     Active Substance: PREDNISOLONE
     Indication: IMMUNOSUPPRESSION
     Dosage: 15 MG, QD
     Route: 065
     Dates: start: 201710
  4. TACROLIMUS. [Suspect]
     Active Substance: TACROLIMUS
     Dosage: 10 MG, QD
     Route: 065
     Dates: start: 201710, end: 201710
  5. TACROLIMUS. [Suspect]
     Active Substance: TACROLIMUS
     Indication: IMMUNOSUPPRESSION
     Dosage: 9 MG, QD
     Route: 065
     Dates: start: 201710, end: 201710
  6. SIMULECT [Concomitant]
     Active Substance: BASILIXIMAB
     Indication: IMMUNOSUPPRESSION
     Dosage: UNK
     Route: 065
  7. CALCIUM [Suspect]
     Active Substance: CALCIUM
     Indication: IMMUNOSUPPRESSION
     Dosage: UNK
     Route: 065
  8. FUROSEMIDE. [Suspect]
     Active Substance: FUROSEMIDE
     Dosage: UNK
     Route: 065
  9. MYCOPHENOLATE MOFETIL. [Suspect]
     Active Substance: MYCOPHENOLATE MOFETIL
     Indication: IMMUNOSUPPRESSION
     Dosage: 2 G, QD
     Route: 065
     Dates: start: 201710, end: 201710
  10. TACROLIMUS. [Suspect]
     Active Substance: TACROLIMUS
     Indication: RENAL TRANSPLANT
     Dosage: 14 MG, QD
     Route: 065
     Dates: start: 201710, end: 201710
  11. TACROLIMUS. [Suspect]
     Active Substance: TACROLIMUS
     Dosage: 2 MG, QD
     Route: 065
     Dates: start: 201710
  12. SIMULECT [Concomitant]
     Active Substance: BASILIXIMAB
     Indication: RENAL TRANSPLANT
     Dosage: UNK
     Route: 065
  13. MORPHINE SULFATE. [Suspect]
     Active Substance: MORPHINE SULFATE
     Indication: PAIN
     Dosage: UNK
     Route: 065
  14. MYCOPHENOLATE MOFETIL. [Suspect]
     Active Substance: MYCOPHENOLATE MOFETIL
     Indication: RENAL TRANSPLANT
     Dosage: 1500 MG, UNK
     Route: 065
  15. VITAMIN D [Suspect]
     Active Substance: CHOLECALCIFEROL
     Indication: IMMUNOSUPPRESSION
     Dosage: UNK
     Route: 065
  16. SULFAMETHOXAZOLE [Suspect]
     Active Substance: SULFAMETHOXAZOLE
     Indication: IMMUNOSUPPRESSION
     Dosage: UNK
     Route: 065
  17. CEFTRIAXONE SODIUM. [Suspect]
     Active Substance: CEFTRIAXONE SODIUM
     Indication: IMMUNOSUPPRESSION
     Dosage: UNK
     Route: 065
  18. MORPHINE SULFATE. [Suspect]
     Active Substance: MORPHINE SULFATE
     Indication: IMMUNOSUPPRESSION

REACTIONS (4)
  - Pancreatitis acute [Recovering/Resolving]
  - Delayed graft function [Unknown]
  - Sphincter of Oddi dysfunction [Unknown]
  - Diarrhoea [Recovered/Resolved]

NARRATIVE: CASE EVENT DATE: 201710
